FAERS Safety Report 8947609 (Version 2)
Quarter: 2013Q2

REPORT INFORMATION
  Report Type: Report from Study
  Country: CA (occurrence: CA)
  Receive Date: 20121205
  Receipt Date: 20130605
  Transmission Date: 20140414
  Serious: Yes (Other)
  Sender: FDA-Public Use
  Company Number: CA-ROCHE-1162245

PATIENT
  Age: 64 Year
  Sex: Female
  Weight: 62.2 kg

DRUGS (12)
  1. XELODA [Suspect]
     Indication: COLORECTAL CANCER METASTATIC
     Route: 048
     Dates: start: 20111101
  2. XELODA [Suspect]
     Route: 048
     Dates: start: 20111122, end: 201201
  3. XELODA [Suspect]
     Route: 048
     Dates: start: 201211, end: 201301
  4. SPIRIVA [Concomitant]
  5. SINGULAIR [Concomitant]
  6. SIMBICORT [Concomitant]
  7. VENTOLIN [Concomitant]
  8. HYDROCHLORZIDE [Concomitant]
  9. ASPIRIN [Concomitant]
  10. COZAAR [Concomitant]
  11. NOVO-BETAHISTINE [Concomitant]
  12. CLONAZEPAM [Concomitant]

REACTIONS (11)
  - Neoplasm [Unknown]
  - Dizziness [Unknown]
  - Nausea [Recovering/Resolving]
  - Fatigue [Unknown]
  - Mental impairment [Unknown]
  - Asthenia [Not Recovered/Not Resolved]
  - Fatigue [Unknown]
  - Asthenia [Unknown]
  - Decreased appetite [Unknown]
  - Weight decreased [Unknown]
  - Diarrhoea [Unknown]
